FAERS Safety Report 19689505 (Version 1)
Quarter: 2021Q3

REPORT INFORMATION
  Report Type: Spontaneous
  Country: US (occurrence: US)
  Receive Date: 20210812
  Receipt Date: 20210812
  Transmission Date: 20211014
  Serious: No
  Sender: FDA-Public Use
  Company Number: US-PFIZER INC-2021509617

PATIENT
  Age: 58 Year
  Sex: Male

DRUGS (6)
  1. FISH OIL [Concomitant]
     Active Substance: FISH OIL
     Dosage: 100 ? 150 MG
  2. IBRANCE [Suspect]
     Active Substance: PALBOCICLIB
     Indication: BREAST CANCER FEMALE
     Dosage: 125 MG, CYCLIC (DAILY FOR 21 DAYS)
     Route: 048
     Dates: start: 20210419
  3. FASLODEX [Concomitant]
     Active Substance: FULVESTRANT
     Dosage: 250MG/5 SYRINGE
  4. LETROZOLE. [Concomitant]
     Active Substance: LETROZOLE
     Dosage: 2.5 MG
  5. CALCIUM [Concomitant]
     Active Substance: CALCIUM
     Dosage: 500 (1250)
  6. IBRANCE [Suspect]
     Active Substance: PALBOCICLIB
     Dosage: 125MG  DAILY FOR 21 DAYS 7 DAYS OFF
     Route: 048

REACTIONS (3)
  - Diarrhoea [Recovered/Resolved]
  - Burning sensation [Unknown]
  - White blood cell count decreased [Unknown]
